FAERS Safety Report 12118897 (Version 1)
Quarter: 2016Q1

REPORT INFORMATION
  Report Type: Spontaneous
  Country: JP (occurrence: JP)
  Receive Date: 20160226
  Receipt Date: 20160226
  Transmission Date: 20160526
  Serious: Yes (Other)
  Sender: FDA-Public Use
  Company Number: JP-ELI_LILLY_AND_COMPANY-JP201602006253

PATIENT
  Age: 54 Year
  Sex: Female

DRUGS (2)
  1. UFT [Concomitant]
     Active Substance: TEGAFUR\URACIL
     Indication: PANCREATIC CARCINOMA
  2. GEMZAR [Suspect]
     Active Substance: GEMCITABINE HYDROCHLORIDE
     Indication: PANCREATIC CARCINOMA
     Route: 042

REACTIONS (2)
  - Ascites [Recovering/Resolving]
  - Platelet count decreased [Recovered/Resolved]
